FAERS Safety Report 8063793 (Version 3)
Quarter: 2018Q1

REPORT INFORMATION
  Report Type: Spontaneous
  Country: FR (occurrence: FR)
  Receive Date: 20110801
  Receipt Date: 20180216
  Transmission Date: 20180509
  Serious: Yes (Death)
  Sender: FDA-Public Use
  Company Number: PHHY2011FR67267

PATIENT
  Age: 36 Year
  Sex: Male

DRUGS (13)
  1. TOBRAMYCIN. [Concomitant]
     Active Substance: TOBRAMYCIN
     Indication: ANTIBIOTIC THERAPY
     Route: 065
  2. VORICONAZOLE. [Suspect]
     Active Substance: VORICONAZOLE
     Dosage: 1 DF, Q12H (6 MG/KG) (EVERY 12 H AS A LOADING DOSE)
     Route: 042
  3. CYCLOSPORINE. [Concomitant]
     Active Substance: CYCLOSPORINE
     Indication: IMMUNOSUPPRESSANT DRUG THERAPY
     Route: 065
  4. SOLU-MEDROL [Concomitant]
     Active Substance: METHYLPREDNISOLONE SODIUM SUCCINATE
     Indication: IMMUNOSUPPRESSANT DRUG THERAPY
     Dosage: 120 MG, TID (THREE DOSES PER DAY)
     Route: 065
  5. CASPOFUNGIN ACETATE. [Suspect]
     Active Substance: CASPOFUNGIN ACETATE
     Dosage: 70 MG, QD (POWDER FOR CONCENTRATE FOR SOLUTION FOR INFUSION)
     Route: 065
  6. VORICONAZOLE. [Suspect]
     Active Substance: VORICONAZOLE
     Indication: ANTIFUNGAL TREATMENT
     Dosage: 1 DF, BID (4 MG/KG)
     Route: 065
  7. PIPERACILLIN [Concomitant]
     Active Substance: PIPERACILLIN
     Indication: ANTIBIOTIC THERAPY
     Route: 065
  8. TAZOBACTAM [Concomitant]
     Active Substance: TAZOBACTAM
     Indication: ANTIBIOTIC THERAPY
     Route: 065
  9. BASILIXIMAB [Concomitant]
     Active Substance: BASILIXIMAB
     Indication: IMMUNOSUPPRESSANT DRUG THERAPY
     Dosage: 20 MG, UNK ()ON THE DAY OF TRANSPLANTATION AND ON DAY 4)
     Route: 042
  10. FLUCONAZOLE. [Concomitant]
     Active Substance: FLUCONAZOLE
     Indication: CANDIDA INFECTION
     Dosage: 20 MG, UNK (AFTER EACH DIALYSIS)
     Route: 042
  11. VANCOMYCIN [Concomitant]
     Active Substance: VANCOMYCIN
     Indication: ANTIBIOTIC THERAPY
     Route: 065
  12. CASPOFUNGIN ACETATE. [Suspect]
     Active Substance: CASPOFUNGIN ACETATE
     Indication: ANTIFUNGAL TREATMENT
     Dosage: 50 MG, QD (POWDER FOR CONCENTRATE FOR SOLUTION FOR INFUSION)
     Route: 065
  13. SOLU-MEDROL [Concomitant]
     Active Substance: METHYLPREDNISOLONE SODIUM SUCCINATE
     Dosage: 10 MG/KG, UNK (BODY WEIGHT ON THE DAY OF TRANSPLANTATION)
     Route: 065

REACTIONS (1)
  - Drug ineffective [Fatal]
